FAERS Safety Report 4290538-2 (Version None)
Quarter: 2004Q1

REPORT INFORMATION
  Report Type: 
  Country: None (occurrence: None)
  Receive Date: 20040209
  Receipt Date: 20040115
  Transmission Date: 20041129
  Serious: Yes (Hospitalization)
  Sender: FDA-Public Use
  Company Number: A02200400181

PATIENT
  Age: 51 Year
  Sex: Female

DRUGS (3)
  1. TRANXENE [Suspect]
     Indication: DEPRESSION
     Route: 048
     Dates: start: 20011201
  2. STILNOX (ZOLPIDEM) TABLET 10 MG [Suspect]
     Indication: SLEEP DISORDER
     Route: 048
     Dates: start: 20011201, end: 20031219
  3. EFFEXOR [Suspect]
     Indication: DEPRESSION
     Dosage: 50 MG TID
     Route: 048
     Dates: start: 20011201, end: 20031219

REACTIONS (4)
  - ECZEMA [None]
  - HYPERHIDROSIS [None]
  - NIGHT SWEATS [None]
  - PRURITUS [None]
